FAERS Safety Report 24979258 (Version 1)
Quarter: 2025Q1

REPORT INFORMATION
  Report Type: Report from Study
  Country: US (occurrence: US)
  Receive Date: 20250218
  Receipt Date: 20250218
  Transmission Date: 20250408
  Serious: Yes (Other)
  Sender: BIOVITRUM
  Company Number: US-BIOVITRUM-2025-US-001223

PATIENT
  Age: 61 Year
  Sex: Female

DRUGS (1)
  1. KINERET [Suspect]
     Active Substance: ANAKINRA
     Indication: Arthropathy
     Route: 058

REACTIONS (4)
  - Drug hypersensitivity [Unknown]
  - Intentional product misuse [Recovered/Resolved]
  - Angioedema [Recovered/Resolved]
  - Respiratory disorder [Recovered/Resolved]
